FAERS Safety Report 6954277-9 (Version None)
Quarter: 2010Q3

REPORT INFORMATION
  Report Type: 
  Country: None (occurrence: None)
  Receive Date: 20100829
  Receipt Date: 20100713
  Transmission Date: 20110219
  Serious: No
  Sender: FDA-Public Use
  Company Number: US-ABBOTT-10P-163-0657447-00

PATIENT
  Sex: Male
  Weight: 113.5 kg

DRUGS (2)
  1. NIASPAN [Suspect]
     Indication: BLOOD CHOLESTEROL INCREASED
     Dates: start: 20100101
  2. ASPIRIN [Concomitant]
     Indication: PRODUCT USED FOR UNKNOWN INDICATION
     Dates: start: 20030101

REACTIONS (3)
  - COUGH [None]
  - INCREASED UPPER AIRWAY SECRETION [None]
  - SPUTUM DISCOLOURED [None]
